FAERS Safety Report 14822982 (Version 4)
Quarter: 2018Q2

REPORT INFORMATION
  Report Type: Spontaneous
  Country: JP (occurrence: JP)
  Receive Date: 20180427
  Receipt Date: 20180521
  Transmission Date: 20180711
  Serious: Yes (Death)
  Sender: FDA-Public Use
  Company Number: PHHY2018JP073876

PATIENT
  Age: 89 Year
  Sex: Female

DRUGS (6)
  1. PREDNISOLONE. [Suspect]
     Active Substance: PREDNISOLONE
     Indication: HAEMORRHAGE SUBCUTANEOUS
  2. CYCLOPHOSPHAMIDE. [Suspect]
     Active Substance: CYCLOPHOSPHAMIDE
     Indication: HAEMORRHAGE SUBCUTANEOUS
  3. CYCLOPHOSPHAMIDE. [Suspect]
     Active Substance: CYCLOPHOSPHAMIDE
     Indication: FACTOR VIII DEFICIENCY
     Dosage: 50 MG, UNK
     Route: 065
  4. FACTOR VIIA, RECOMBINANT [Suspect]
     Active Substance: COAGULATION FACTOR VIIA RECOMBINANT HUMAN
     Indication: FACTOR VIII DEFICIENCY
     Dosage: 95 MG, UNK
     Route: 065
  5. FACTOR VIIA, RECOMBINANT [Suspect]
     Active Substance: COAGULATION FACTOR VIIA RECOMBINANT HUMAN
     Indication: HAEMORRHAGE SUBCUTANEOUS
  6. PREDNISOLONE. [Suspect]
     Active Substance: PREDNISOLONE
     Indication: FACTOR VIII DEFICIENCY
     Dosage: 0.5 MG/KG, UNK
     Route: 065

REACTIONS (5)
  - Pneumonia [Fatal]
  - Asthenia [Fatal]
  - Decreased appetite [Fatal]
  - Fatigue [Fatal]
  - Drug ineffective [Fatal]
